FAERS Safety Report 5627109-9 (Version None)
Quarter: 2008Q1

REPORT INFORMATION
  Report Type: 
  Country: None (occurrence: None)
  Receive Date: 20080129
  Receipt Date: 20070625
  Transmission Date: 20080703
  Serious: Yes (Hospitalization)
  Sender: FDA-Public Use
  Company Number: 8024974

PATIENT
  Age: 39 Year
  Sex: Female
  Weight: 39.5 kg

DRUGS (5)
  1. KEPPRA [Suspect]
     Indication: CONVULSION
     Dates: start: 20060901, end: 20070101
  2. KEPPRA [Suspect]
     Indication: CONVULSION
     Dosage: 500 MG 2/D PO
     Route: 048
     Dates: start: 20070116
  3. LAMICTAL [Concomitant]
  4. RISPERDAL [Concomitant]
  5. AMBIEN [Concomitant]

REACTIONS (3)
  - GAIT DISTURBANCE [None]
  - VOMITING [None]
  - WEIGHT DECREASED [None]
